FAERS Safety Report 7142738-1 (Version None)
Quarter: 2010Q4

REPORT INFORMATION
  Report Type: 
  Country: None (occurrence: None)
  Receive Date: 20101207
  Receipt Date: 20101123
  Transmission Date: 20110411
  Serious: Yes (Hospitalization, Other)
  Sender: FDA-Public Use
  Company Number: PHHY2010US76438

PATIENT
  Sex: Male

DRUGS (3)
  1. EXJADE [Suspect]
     Dosage: 750 MG/ DAILY
     Route: 048
  2. REVLIMID [Suspect]
  3. CHEMOTHERAPEUTICS NOS [Concomitant]

REACTIONS (11)
  - BACTERAEMIA [None]
  - BACTERIAL SEPSIS [None]
  - BLOOD IMMUNOGLOBULIN G ABNORMAL [None]
  - CHILLS [None]
  - PANCYTOPENIA [None]
  - PLATELET COUNT ABNORMAL [None]
  - PROTEIN TOTAL ABNORMAL [None]
  - PYREXIA [None]
  - RED BLOOD CELL COUNT DECREASED [None]
  - STEM CELL TRANSPLANT [None]
  - WHITE BLOOD CELL COUNT DECREASED [None]
